FAERS Safety Report 4530533-9 (Version None)
Quarter: 2004Q4

REPORT INFORMATION
  Report Type: 
  Country: None (occurrence: None)
  Receive Date: 20041216
  Receipt Date: 20041029
  Transmission Date: 20050328
  Serious: Yes (Hospitalization)
  Sender: FDA-Public Use
  Company Number: A04200401052

PATIENT
  Age: 35 Year
  Sex: Female

DRUGS (3)
  1. QUENSYL - (HYDROXYCHLOROQUINE SULFATE) - TABLET - 200 MG [Suspect]
     Indication: POLYARTHRITIS
     Dosage: ORAL
     Route: 048
  2. METHOTREXATE SODIUM [Suspect]
     Indication: POLYARTHRITIS
  3. ENBREL [Suspect]
     Indication: POLYARTHRITIS
     Dosage: SUBCUTANEOUS
     Route: 058

REACTIONS (1)
  - UVEITIS [None]
